FAERS Safety Report 6059108-X (Version None)
Quarter: 2009Q1

REPORT INFORMATION
  Report Type: 
  Country: None (occurrence: None)
  Receive Date: 20090130
  Receipt Date: 20090127
  Transmission Date: 20090719
  Serious: Yes (Other)
  Sender: FDA-Public Use
  Company Number: US-AVENTIS-200818670US

PATIENT
  Sex: Female
  Weight: 88.9 kg

DRUGS (2)
  1. LANTUS [Suspect]
     Route: 058
     Dates: start: 20051115
  2. OPTICLIK (INSULIN INJECTION PEN) [Suspect]
     Dates: start: 20051115

REACTIONS (2)
  - CATARACT OPERATION [None]
  - VISUAL IMPAIRMENT [None]
